FAERS Safety Report 15906615 (Version 1)
Quarter: 2019Q1

REPORT INFORMATION
  Report Type: Spontaneous
  Country: US (occurrence: US)
  Receive Date: 20190204
  Receipt Date: 20190204
  Transmission Date: 20190417
  Serious: Yes (Hospitalization)
  Sender: FDA-Public Use
  Company Number: None

PATIENT
  Age: 55 Year
  Sex: Female

DRUGS (7)
  1. AMLOD/VALSAR [Concomitant]
  2. TURMERIC [Concomitant]
     Active Substance: HERBALS\TURMERIC
  3. VITAMIN D3 [Concomitant]
     Active Substance: CHOLECALCIFEROL
  4. HUMIRA [Suspect]
     Active Substance: ADALIMUMAB
     Indication: PSORIATIC ARTHROPATHY
     Dosage: ?          OTHER FREQUENCY:EVERY OTHER WEEK;?
     Route: 058
     Dates: start: 20190108
  5. BIOTIN [Concomitant]
     Active Substance: BIOTIN
  6. VITAMIN C [Concomitant]
     Active Substance: ASCORBIC ACID
  7. GARLIC. [Concomitant]
     Active Substance: GARLIC

REACTIONS (1)
  - Infection [None]

NARRATIVE: CASE EVENT DATE: 20190127
